FAERS Safety Report 5911990-X (Version None)
Quarter: 2008Q4

REPORT INFORMATION
  Report Type: 
  Country: None (occurrence: None)
  Receive Date: 20081008
  Receipt Date: 20081001
  Transmission Date: 20090506
  Serious: Yes (Other)
  Sender: FDA-Public Use
  Company Number: PHHY2008GB23674

PATIENT
  Sex: Male

DRUGS (1)
  1. NILOTINIB [Suspect]
     Dosage: 400 MG/DAY
     Route: 048

REACTIONS (1)
  - PLEURAL EFFUSION [None]
